FAERS Safety Report 7061379-8 (Version None)
Quarter: 2010Q4

REPORT INFORMATION
  Report Type: 
  Country: None (occurrence: None)
  Receive Date: 20101026
  Receipt Date: 20101019
  Transmission Date: 20110411
  Serious: Yes (Other)
  Sender: FDA-Public Use
  Company Number: PHHY2010FR66836

PATIENT
  Sex: Female
  Weight: 56 kg

DRUGS (4)
  1. EXTAVIA [Suspect]
     Indication: MULTIPLE SCLEROSIS
     Dosage: UNK
     Route: 058
     Dates: start: 20100201
  2. COZAAR [Concomitant]
     Dosage: 1 DF, QD
  3. LYRICA [Concomitant]
     Dosage: 75 MG, BID
  4. NULYTELY [Concomitant]
     Dosage: UNK, PRN

REACTIONS (1)
  - WEIGHT DECREASED [None]
